FAERS Safety Report 10249382 (Version 1)
Quarter: 2014Q2

REPORT INFORMATION
  Report Type: Spontaneous
  Country: US (occurrence: None)
  Receive Date: 20140522
  Receipt Date: 20140522
  Transmission Date: 20141212
  Serious: No
  Sender: FDA-Public Use
  Company Number: 1000060265

PATIENT
  Age: 73 Year
  Sex: Female

DRUGS (4)
  1. TUDORZA PRESSAIR [Suspect]
     Indication: CHRONIC OBSTRUCTIVE PULMONARY DISEASE
     Dosage: 800 UG (400 UG, 2 IN 1 D)
     Route: 055
     Dates: start: 2013
  2. XOPENEX [Suspect]
     Indication: CHRONIC OBSTRUCTIVE PULMONARY DISEASE
     Dosage: TWICE DAILY
     Dates: start: 2013
  3. DIOVAN (VALSARTAN) [Concomitant]
  4. ATORVASTATIN [Concomitant]

REACTIONS (2)
  - Tooth discolouration [None]
  - Vision blurred [None]
